FAERS Safety Report 8393476 (Version 5)
Quarter: 2013Q1

REPORT INFORMATION
  Report Type: Spontaneous
  Country: US (occurrence: None)
  Receive Date: 20120125
  Receipt Date: 20130118
  Transmission Date: 20140127
  Serious: Yes (Other)
  Sender: FDA-Public Use
  Company Number: ADR-2009-7621

PATIENT
  Sex: Female

DRUGS (1)
  1. BACLOFEN [Suspect]
     Dosage: SEE B5 MCG, DAILY, INTR
     Route: 037

REACTIONS (3)
  - MUSCLE SPASTICITY [None]
  - MEDICAL DEVICE COMPLICATION [None]
  - DRUG EFFECT DECREASED [None]
